FAERS Safety Report 18132202 (Version 2)
Quarter: 2020Q3

REPORT INFORMATION
  Report Type: Spontaneous
  Country: US (occurrence: US)
  Receive Date: 20200811
  Receipt Date: 20200903
  Transmission Date: 20201103
  Serious: Yes (Other)
  Sender: FDA-Public Use
  Company Number: US-AUROBINDO-AUR-APL-2020-038205

PATIENT
  Sex: Female

DRUGS (1)
  1. OLANZAPINE. [Suspect]
     Active Substance: OLANZAPINE
     Indication: FRAGILE X SYNDROME
     Dosage: 5 MILLIGRAM, TWO TIMES A DAY, (REDUCED)
     Route: 065

REACTIONS (3)
  - Dystonia [Unknown]
  - Withdrawal syndrome [Recovered/Resolved]
  - Oculogyric crisis [Recovered/Resolved]
